FAERS Safety Report 8133706-1 (Version None)
Quarter: 2012Q1

REPORT INFORMATION
  Report Type: 
  Country: None (occurrence: None)
  Receive Date: 20120213
  Receipt Date: 20120203
  Transmission Date: 20120608
  Serious: Yes (Other)
  Sender: FDA-Public Use
  Company Number: US-ABBOTT-12P-163-0901635-00

PATIENT
  Sex: Male
  Weight: 4.76 kg

DRUGS (1)
  1. HUMIRA [Suspect]
     Indication: PSORIASIS
     Dates: start: 20110601, end: 20120101

REACTIONS (1)
  - TUBERCULIN TEST POSITIVE [None]
